FAERS Safety Report 24191505 (Version 1)
Quarter: 2024Q3

REPORT INFORMATION
  Report Type: Spontaneous
  Country: ES (occurrence: ES)
  Receive Date: 20240808
  Receipt Date: 20240808
  Transmission Date: 20241017
  Serious: Yes (Other)
  Sender: JOHNSON AND JOHNSON
  Company Number: ES-JNJFOC-20240670178

PATIENT
  Age: 66 Year
  Sex: Male

DRUGS (4)
  1. INVEGA [Suspect]
     Active Substance: PALIPERIDONE
     Indication: Schizophrenia
     Route: 048
  2. FERBISOL [Concomitant]
     Indication: Iron deficiency
  3. OMEPRAZOLE [Concomitant]
     Active Substance: OMEPRAZOLE
  4. LORAZEPAM [Concomitant]
     Active Substance: LORAZEPAM

REACTIONS (6)
  - Brain injury [Unknown]
  - Osteoarthritis [Recovered/Resolved]
  - Somnolence [Unknown]
  - Fatigue [Unknown]
  - Affective disorder [Unknown]
  - Product prescribing error [Unknown]

NARRATIVE: CASE EVENT DATE: 20240401
